FAERS Safety Report 7779709-8 (Version None)
Quarter: 2011Q3

REPORT INFORMATION
  Report Type: 
  Country: None (occurrence: None)
  Receive Date: 20110927
  Receipt Date: 20110921
  Transmission Date: 20111222
  Serious: Yes (Other)
  Sender: FDA-Public Use
  Company Number: GR-PFIZER INC-2011223937

PATIENT
  Age: 75 Year
  Sex: Female

DRUGS (2)
  1. LYRICA [Suspect]
     Indication: NEUROPATHY PERIPHERAL
     Dosage: 3 DF, PER DAY
     Dates: start: 20080101, end: 20110101
  2. LYRICA [Suspect]
     Dosage: 2 DF, PER DAY
     Dates: start: 20110101

REACTIONS (11)
  - DIZZINESS [None]
  - FALL [None]
  - DRY MOUTH [None]
  - DRY EYE [None]
  - WEIGHT DECREASED [None]
  - PERIPHERAL COLDNESS [None]
  - NAUSEA [None]
  - FLUSHING [None]
  - GAIT DISTURBANCE [None]
  - SYNCOPE [None]
  - VERTIGO [None]
